FAERS Safety Report 19388911 (Version 1)
Quarter: 2021Q2

REPORT INFORMATION
  Report Type: Spontaneous
  Country: AR (occurrence: AR)
  Receive Date: 20210608
  Receipt Date: 20210608
  Transmission Date: 20210717
  Serious: No
  Sender: FDA-Public Use
  Company Number: AR-ALKEM LABORATORIES LIMITED-AR-ALKEM-2021-02205

PATIENT

DRUGS (4)
  1. EVG [ELVITEGRAVIR] [Suspect]
     Active Substance: ELVITEGRAVIR
     Indication: ANTIRETROVIRAL THERAPY
     Dosage: 150 MILLIGRAM, QD
     Route: 065
  2. FTC [Suspect]
     Active Substance: EMTRICITABINE
     Indication: ANTIRETROVIRAL THERAPY
     Dosage: 200 MILLIGRAM, QD
     Route: 065
  3. TDF [TENOFOVIR] [Suspect]
     Active Substance: TENOFOVIR
     Indication: ANTIRETROVIRAL THERAPY
     Dosage: 300 MILLIGRAM, QD
     Route: 065
  4. TACROLIMUS. [Suspect]
     Active Substance: TACROLIMUS
     Indication: IMMUNOSUPPRESSION
     Dosage: UNK
     Route: 065

REACTIONS (1)
  - Toxicity to various agents [Unknown]
